FAERS Safety Report 13668347 (Version 1)
Quarter: 2017Q2

REPORT INFORMATION
  Report Type: Report from Study
  Country: IT (occurrence: IT)
  Receive Date: 20170620
  Receipt Date: 20170620
  Transmission Date: 20170830
  Serious: Yes (Other)
  Sender: FDA-Public Use
  Company Number: IT-ACCORD-052474

PATIENT
  Age: 76 Year
  Sex: Male
  Weight: 63 kg

DRUGS (6)
  1. ERBITUX [Suspect]
     Active Substance: CETUXIMAB
     Indication: SQUAMOUS CELL CARCINOMA OF HEAD AND NECK
     Route: 042
     Dates: start: 20151223, end: 20160519
  2. FLUOROURACIL. [Suspect]
     Active Substance: FLUOROURACIL
     Indication: SQUAMOUS CELL CARCINOMA OF HEAD AND NECK
     Route: 042
     Dates: start: 20151223, end: 20160414
  3. VIGORSKIN [Concomitant]
     Dates: start: 20160125
  4. EPARINA [Concomitant]
     Dates: start: 20160317
  5. CARBOPLATIN. [Suspect]
     Active Substance: CARBOPLATIN
     Indication: SQUAMOUS CELL CARCINOMA OF HEAD AND NECK
     Route: 042
     Dates: start: 20151223, end: 20160414
  6. DELTACORTENE [Concomitant]
     Active Substance: PREDNISONE
     Dates: start: 20160222

REACTIONS (6)
  - Dermatitis acneiform [Unknown]
  - Off label use [Unknown]
  - Hypocalcaemia [Recovered/Resolved]
  - Thrombocytopenia [Recovered/Resolved]
  - Dermatitis [Recovered/Resolved]
  - Stomatitis [Recovered/Resolved]

NARRATIVE: CASE EVENT DATE: 20160125
